FAERS Safety Report 7199364-8 (Version None)
Quarter: 2010Q4

REPORT INFORMATION
  Report Type: 
  Country: None (occurrence: None)
  Receive Date: 20101228
  Receipt Date: 20101215
  Transmission Date: 20110411
  Serious: Yes (Life-Threatening, Hospitalization)
  Sender: FDA-Public Use
  Company Number: SK-TEVA-260599ISR

PATIENT
  Sex: Female
  Weight: 80 kg

DRUGS (2)
  1. WARFARIN SODIUM [Suspect]
     Indication: PULMONARY EMBOLISM
     Route: 048
     Dates: start: 20070525, end: 20070911
  2. UDRAMIL (VERAPAMIL HYDROCHLORIDE, TRANDOLAPRIL) [Concomitant]
     Indication: HYPERTENSION
     Dosage: 2/180 MG
     Route: 048
     Dates: start: 19980101

REACTIONS (2)
  - GASTRIC ULCER [None]
  - MELAENA [None]
